FAERS Safety Report 8381654-4 (Version None)
Quarter: 2012Q2

REPORT INFORMATION
  Report Type: 
  Country: None (occurrence: None)
  Receive Date: 20120524
  Receipt Date: 20120514
  Transmission Date: 20120825
  Serious: No
  Sender: FDA-Public Use
  Company Number: US-ASTRAZENECA-2012SE30725

PATIENT
  Sex: Male

DRUGS (3)
  1. CAPRELSA [Suspect]
     Indication: THYROID CANCER
     Route: 048
  2. CAPRELSA [Suspect]
     Route: 048
  3. CAPRELSA [Suspect]
     Route: 048

REACTIONS (2)
  - INTENTIONAL DRUG MISUSE [None]
  - RASH GENERALISED [None]
